FAERS Safety Report 15547942 (Version 1)
Quarter: 2018Q4

REPORT INFORMATION
  Report Type: Report from Study
  Country: US (occurrence: US)
  Receive Date: 20181024
  Receipt Date: 20181024
  Transmission Date: 20190205
  Serious: Yes (Hospitalization, Other)
  Sender: FDA-Public Use
  Company Number: PHEH2018US044366

PATIENT
  Sex: Female

DRUGS (2)
  1. ENTRESTO [Suspect]
     Active Substance: SACUBITRIL\VALSARTAN
     Dosage: UNK, BID
     Route: 048
  2. ENTRESTO [Suspect]
     Active Substance: SACUBITRIL\VALSARTAN
     Indication: CARDIAC FAILURE
     Dosage: UNK UNK, QD
     Route: 048

REACTIONS (12)
  - White blood cell count decreased [Unknown]
  - Irritable bowel syndrome [Unknown]
  - Panic attack [Unknown]
  - Vertigo [Unknown]
  - Arthritis [Unknown]
  - Joint swelling [Unknown]
  - Pneumonia aspiration [Unknown]
  - Malaise [Unknown]
  - Inappropriate schedule of product administration [Unknown]
  - Anxiety [Unknown]
  - Nervousness [Unknown]
  - Feeling abnormal [Unknown]
